FAERS Safety Report 5378110-4 (Version None)
Quarter: 2007Q3

REPORT INFORMATION
  Report Type: 
  Country: None (occurrence: None)
  Receive Date: 20070705
  Receipt Date: 20070625
  Transmission Date: 20080115
  Serious: Yes (Other)
  Sender: FDA-Public Use
  Company Number: PHHO2007JP10820

PATIENT
  Age: 26 Year
  Sex: Female
  Weight: 42 kg

DRUGS (4)
  1. CHI 621 [Suspect]
     Indication: RENAL TRANSPLANT
     Dosage: 20 MG
     Route: 042
     Dates: start: 20061201, end: 20061201
  2. CHI 621 [Suspect]
     Dosage: 20 MG
     Route: 042
     Dates: start: 20061205, end: 20061205
  3. PREDONINE [Suspect]
     Indication: RENAL TRANSPLANT
     Dosage: 10 MG/DAILY
     Route: 048
     Dates: start: 20061201
  4. SELBEX [Concomitant]

REACTIONS (5)
  - DUODENAL OPERATION [None]
  - DUODENAL PERFORATION [None]
  - DUODENAL ULCER HAEMORRHAGE [None]
  - HAEMOSTASIS [None]
  - STRESS [None]
